FAERS Safety Report 10065267 (Version 1)
Quarter: 2014Q2

REPORT INFORMATION
  Report Type: Spontaneous
  Country: US (occurrence: None)
  Receive Date: 20140407
  Receipt Date: 20140407
  Transmission Date: 20141212
  Serious: Yes (Hospitalization)
  Sender: FDA-Public Use
  Company Number: None

PATIENT
  Age: 62 Year
  Sex: Male

DRUGS (1)
  1. PREDNISONE [Suspect]
     Indication: CHONDROCALCINOSIS PYROPHOSPHATE
     Route: 048
     Dates: start: 20131219, end: 20131220

REACTIONS (4)
  - Mental status changes [None]
  - Confusional state [None]
  - Full blood count abnormal [None]
  - Drug screen positive [None]
